FAERS Safety Report 16130559 (Version 2)
Quarter: 2019Q2

REPORT INFORMATION
  Report Type: Report from Study
  Country: CA (occurrence: CA)
  Receive Date: 20190328
  Receipt Date: 20190514
  Transmission Date: 20190711
  Serious: Yes (Other)
  Sender: FDA-Public Use
  Company Number: CA-TAKEDA-2019TUS017374

PATIENT
  Age: 58 Year
  Sex: Female

DRUGS (9)
  1. VITAMINE D [Concomitant]
     Active Substance: CHOLECALCIFEROL
     Dosage: UNK UNK, QD
  2. ACTONEL [Concomitant]
     Active Substance: RISEDRONATE SODIUM
     Dosage: 35 MILLIGRAM, 1/WEEK
  3. VEDOLIZUMAB [Suspect]
     Active Substance: VEDOLIZUMAB
     Dosage: 300 MILLIGRAM, Q4WEEKS
     Route: 042
     Dates: start: 20160322
  4. CELEXA [Concomitant]
     Active Substance: CITALOPRAM HYDROBROMIDE
     Dosage: 20 MILLIGRAM, QD
  5. PREDNISONE. [Concomitant]
     Active Substance: PREDNISONE
     Dosage: 15 MILLIGRAM
  6. RANITIDINE. [Concomitant]
     Active Substance: RANITIDINE
     Dosage: 150 MILLIGRAM, BID
  7. VEDOLIZUMAB [Suspect]
     Active Substance: VEDOLIZUMAB
     Indication: COLITIS ULCERATIVE
     Dosage: 300 MILLIGRAM
     Route: 042
     Dates: start: 20150722
  8. HYDROCORTISONE. [Concomitant]
     Active Substance: HYDROCORTISONE
     Dosage: UNK UNK, QD
  9. CALCIUM [Concomitant]
     Active Substance: CALCIUM
     Dosage: 650 MILLIGRAM, QD

REACTIONS (2)
  - Off label use [Unknown]
  - Deafness [Unknown]

NARRATIVE: CASE EVENT DATE: 20160322
